FAERS Safety Report 7627737-5 (Version None)
Quarter: 2011Q3

REPORT INFORMATION
  Report Type: 
  Country: None (occurrence: None)
  Receive Date: 20110721
  Receipt Date: 20110714
  Transmission Date: 20111222
  Serious: Yes (Other)
  Sender: FDA-Public Use
  Company Number: US-PFIZER INC-2011082193

PATIENT
  Sex: Female

DRUGS (4)
  1. ABILIFY [Concomitant]
     Indication: BIPOLAR DISORDER
     Dosage: UNK
     Dates: start: 20080101, end: 20100101
  2. PAROXETINE [Concomitant]
     Indication: DEPRESSION
     Dosage: UNK
     Dates: start: 20070101, end: 20100101
  3. PAXIL CR [Concomitant]
     Indication: DEPRESSION
     Dosage: UNK
     Dates: start: 20040101
  4. CHANTIX [Suspect]
     Indication: SMOKING CESSATION THERAPY
     Dosage: STARTER PACK
     Dates: start: 20090601, end: 20090615

REACTIONS (3)
  - COGNITIVE DISORDER [None]
  - DEPRESSION [None]
  - ANXIETY [None]
